FAERS Safety Report 9787233 (Version 1)
Quarter: 2013Q4

REPORT INFORMATION
  Report Type: Report from Study
  Country: US (occurrence: US)
  Receive Date: 20131229
  Receipt Date: 20131229
  Transmission Date: 20140711
  Serious: Yes (Other)
  Sender: FDA-Public Use
  Company Number: US-ROCHE-1323471

PATIENT
  Sex: Female
  Weight: 29.2 kg

DRUGS (2)
  1. NUTROPIN AQ [Suspect]
     Indication: GROWTH HORMONE DEFICIENCY
     Dosage: NUTROPIN NUSPIN 20 MG/2 ML PEN
     Route: 058
  2. NUTROPIN AQ [Suspect]
     Dosage: NUTROPIN NUSPIN 20 MG/2 ML PEN
     Route: 058
     Dates: start: 201311

REACTIONS (1)
  - Vitamin D decreased [Unknown]
